FAERS Safety Report 6431763-1 (Version None)
Quarter: 2009Q4

REPORT INFORMATION
  Report Type: 
  Country: None (occurrence: None)
  Receive Date: 20091104
  Receipt Date: 20091026
  Transmission Date: 20100525
  Serious: Yes (Life-Threatening, Hospitalization)
  Sender: FDA-Public Use
  Company Number: 2009-03710

PATIENT
  Age: 68 Year
  Sex: Female

DRUGS (3)
  1. VELCADE [Suspect]
     Indication: MULTIPLE MYELOMA
     Dosage: 1.3 MG/M2,
     Dates: start: 20090611, end: 20090804
  2. DECADRON [Concomitant]
  3. THALIDOMIDE [Concomitant]

REACTIONS (9)
  - BLOOD CREATININE INCREASED [None]
  - CARDIAC FAILURE [None]
  - CARDIO-RESPIRATORY ARREST [None]
  - COMA [None]
  - DISEASE PROGRESSION [None]
  - HYPERTENSION [None]
  - MULTIPLE MYELOMA [None]
  - PULMONARY OEDEMA [None]
  - VENTRICULAR TACHYCARDIA [None]
